FAERS Safety Report 8035554-X (Version None)
Quarter: 2012Q1

REPORT INFORMATION
  Report Type: 
  Country: None (occurrence: None)
  Receive Date: 20120110
  Receipt Date: 20120110
  Transmission Date: 20120608
  Serious: No
  Sender: FDA-Public Use
  Company Number: None

PATIENT
  Sex: Male
  Weight: 38.5557 kg

DRUGS (1)
  1. KEPPRA [Suspect]
     Indication: EPILEPSY
     Dosage: 1 PO TID
     Route: 048

REACTIONS (4)
  - SEDATION [None]
  - ELECTROENCEPHALOGRAM ABNORMAL [None]
  - IRRITABILITY [None]
  - CONSTIPATION [None]
